FAERS Safety Report 25638312 (Version 1)
Quarter: 2025Q3

REPORT INFORMATION
  Report Type: Spontaneous
  Country: EU (occurrence: EU)
  Receive Date: 20250804
  Receipt Date: 20250804
  Transmission Date: 20251021
  Serious: Yes (Death, Other)
  Sender: MYLAN
  Company Number: EU-ORESUND-25OPAJY0637P

PATIENT
  Age: 88 Year
  Sex: Male

DRUGS (2)
  1. METHOTREXATE [Suspect]
     Active Substance: METHOTREXATE
     Indication: Seronegative arthritis
     Dosage: 15 MILLIGRAM, QW,(15 MG/WEEK)
  2. PREDNISOLONE [Suspect]
     Active Substance: PREDNISOLONE
     Indication: Seronegative arthritis
     Dosage: 7.5 MILLIGRAM, QD,(7.5 MG/DAY)

REACTIONS (1)
  - Myocardial infarction [Fatal]
